FAERS Safety Report 21322257 (Version 1)
Quarter: 2022Q3

REPORT INFORMATION
  Report Type: Report from Study
  Country: CO (occurrence: CO)
  Receive Date: 20220912
  Receipt Date: 20220912
  Transmission Date: 20221027
  Serious: Yes (Hospitalization)
  Sender: FDA-Public Use
  Company Number: CO-NOVARTISPH-NVSC2022CO183304

PATIENT
  Sex: Male
  Weight: 68 kg

DRUGS (3)
  1. TASIGNA [Suspect]
     Active Substance: NILOTINIB
     Indication: Chronic myeloid leukaemia
     Dosage: UNK UNK, Q12H (BY MOUTH)
     Route: 048
     Dates: start: 2015
  2. TASIGNA [Suspect]
     Active Substance: NILOTINIB
     Dosage: 400 MG, QD
     Route: 048
  3. LEVOTHYROXINE [Concomitant]
     Active Substance: LEVOTHYROXINE
     Indication: Product used for unknown indication
     Dosage: 100 MG, (24 HOURS) (START 2 MONTHS, STOP 1 MONTH)
     Route: 048

REACTIONS (6)
  - Splenomegaly [Unknown]
  - Abdominal pain [Unknown]
  - Disease recurrence [Unknown]
  - Asthenia [Unknown]
  - Laboratory test abnormal [Unknown]
  - Hypertension [Unknown]
